FAERS Safety Report 19143801 (Version 4)
Quarter: 2022Q2

REPORT INFORMATION
  Report Type: Spontaneous
  Country: US (occurrence: US)
  Receive Date: 20210416
  Receipt Date: 20220421
  Transmission Date: 20220720
  Serious: Yes (Hospitalization, Other)
  Sender: FDA-Public Use
  Company Number: None

PATIENT

DRUGS (7)
  1. OXALIPLATIN [Suspect]
     Active Substance: OXALIPLATIN
     Indication: Colon cancer metastatic
     Dosage: 130 MILLIGRAM/SQ. METER, INFUSION 1 {CYCLICAL}, ON DAY 1, EVERY 21 DAYS
     Route: 041
     Dates: start: 20190925
  2. OXALIPLATIN [Suspect]
     Active Substance: OXALIPLATIN
     Dosage: 85 MILLIGRAM/SQ. METER, EVERY 14 DAYS, INFUSION TIME INCREASED FROM 2 HOURS TO 4 HOURS
     Dates: end: 20200212
  3. CAPECITABINE [Concomitant]
     Active Substance: CAPECITABINE
     Indication: Colon cancer metastatic
     Dosage: 1000 MILLIGRAM/SQ. METER, BID, 1 {CYCLICAL}, ON DAYS 1-14, EVERY 21 DAYS
     Route: 048
     Dates: start: 20190925, end: 20200212
  4. ACETAMINOPHEN [Concomitant]
     Active Substance: ACETAMINOPHEN
     Indication: Product used for unknown indication
     Dosage: UNK
     Route: 065
  5. PALONOSETRON [Concomitant]
     Active Substance: PALONOSETRON
     Indication: Product used for unknown indication
     Dosage: UNK
     Route: 065
  6. DEXAMETHASONE [Concomitant]
     Active Substance: DEXAMETHASONE
     Indication: Product used for unknown indication
     Dosage: UNK DOSE
     Route: 065
  7. FOSAPREPITANT [Concomitant]
     Active Substance: FOSAPREPITANT
     Indication: Product used for unknown indication
     Dosage: UNK
     Route: 065

REACTIONS (12)
  - Neurotoxicity [Recovered/Resolved]
  - Temperature intolerance [Recovered/Resolved]
  - Tremor [Recovered/Resolved]
  - Grip strength decreased [Recovered/Resolved]
  - Hypertonia [Recovered/Resolved]
  - Hypokinesia [Recovered/Resolved]
  - Muscle spasms [Recovered/Resolved]
  - Vision blurred [Recovered/Resolved]
  - Hyporeflexia [Recovered/Resolved]
  - Paraesthesia [Recovered/Resolved]
  - Dysarthria [Recovered/Resolved]
  - Cold dysaesthesia [Recovered/Resolved]

NARRATIVE: CASE EVENT DATE: 20191016
